FAERS Safety Report 12211574 (Version 4)
Quarter: 2016Q2

REPORT INFORMATION
  Report Type: Spontaneous
  Country: US (occurrence: US)
  Receive Date: 20160325
  Receipt Date: 20160531
  Transmission Date: 20160815
  Serious: Yes (Other)
  Sender: FDA-Public Use
  Company Number: US-MDT-ADR-2016-00254

PATIENT
  Age: 12 Year
  Sex: Male

DRUGS (2)
  1. LIORESAL [Suspect]
     Active Substance: BACLOFEN
     Dosage: 399.4MCG/DAY
     Route: 037
  2. LIORESAL [Suspect]
     Active Substance: BACLOFEN
     Dosage: 524.8MCG/DAY
     Route: 037

REACTIONS (3)
  - Muscle spasticity [Recovered/Resolved]
  - Staphylococcal infection [Recovered/Resolved]
  - Cerebrospinal fluid leakage [Recovered/Resolved]
